FAERS Safety Report 25666079 (Version 1)
Quarter: 2025Q3

REPORT INFORMATION
  Report Type: Spontaneous
  Country: US (occurrence: US)
  Receive Date: 20250811
  Receipt Date: 20250811
  Transmission Date: 20251021
  Serious: Yes (Other)
  Sender: CIPLA
  Company Number: US-CIPLA LTD.-2025US09182

PATIENT

DRUGS (1)
  1. BUPROPION [Suspect]
     Active Substance: BUPROPION
     Indication: Product used for unknown indication
     Route: 065
     Dates: start: 2025

REACTIONS (4)
  - Loss of consciousness [Unknown]
  - Tonic convulsion [Unknown]
  - Drug ineffective [Unknown]
  - Product substitution issue [Unknown]

NARRATIVE: CASE EVENT DATE: 20250101
